FAERS Safety Report 7961384-0 (Version None)
Quarter: 2011Q4

REPORT INFORMATION
  Report Type: 
  Country: None (occurrence: None)
  Receive Date: 20111207
  Receipt Date: 20111201
  Transmission Date: 20120403
  Serious: Yes (Hospitalization, Other)
  Sender: FDA-Public Use
  Company Number: US-GENZYME-CAMP-1002027

PATIENT
  Age: 61 Year
  Sex: Male

DRUGS (1)
  1. CAMPATH [Suspect]
     Indication: MYCOSIS FUNGOIDES
     Dosage: 10 MG, 3X/W
     Route: 065
     Dates: start: 20101201

REACTIONS (4)
  - SKIN LESION [None]
  - DEHYDRATION [None]
  - PYREXIA [None]
  - CARDIAC FAILURE [None]
